FAERS Safety Report 5995168-X (Version None)
Quarter: 2008Q4

REPORT INFORMATION
  Report Type: 
  Country: None (occurrence: None)
  Receive Date: 20081212
  Receipt Date: 20080610
  Transmission Date: 20090506
  Serious: No
  Sender: FDA-Public Use
  Company Number: US-AMGEN-KDL267384

PATIENT
  Sex: Male
  Weight: 74.9 kg

DRUGS (6)
  1. ENBREL [Suspect]
     Indication: DRUG USE FOR UNKNOWN INDICATION
     Route: 058
     Dates: start: 20080228
  2. COLCHICINE [Concomitant]
     Dates: start: 19830101
  3. ISONIAZID [Concomitant]
  4. LEXAPRO [Concomitant]
  5. MOTRIN [Concomitant]
  6. VITAMIN B6 [Concomitant]

REACTIONS (2)
  - DIZZINESS [None]
  - NAUSEA [None]
